FAERS Safety Report 25214684 (Version 1)
Quarter: 2025Q2

REPORT INFORMATION
  Report Type: Spontaneous
  Country: US (occurrence: None)
  Receive Date: 20250417
  Receipt Date: 20250417
  Transmission Date: 20250717
  Serious: No
  Sender: FDA-CTU
  Company Number: None

PATIENT
  Age: 77 Year
  Sex: Male

DRUGS (1)
  1. ERENUMAB-AOOE [Suspect]
     Active Substance: ERENUMAB-AOOE
     Indication: Migraine
     Route: 058
     Dates: end: 20250124

REACTIONS (4)
  - Skin burning sensation [None]
  - Pain in extremity [None]
  - Pain in extremity [None]
  - Pruritus [None]

NARRATIVE: CASE EVENT DATE: 20250124
